FAERS Safety Report 5116164-0 (Version None)
Quarter: 2006Q3

REPORT INFORMATION
  Report Type: 
  Country: None (occurrence: None)
  Receive Date: 20060927
  Receipt Date: 20060706
  Transmission Date: 20061208
  Serious: No
  Sender: FDA-Public Use
  Company Number: US-BRISTOL-MYERS SQUIBB COMPANY-13435169

PATIENT
  Sex: Female
  Weight: 113 kg

DRUGS (13)
  1. DEFINITY [Suspect]
     Indication: ECHOCARDIOGRAM
     Dates: start: 20060629
  2. THYROID TAB [Concomitant]
  3. ATARAX [Concomitant]
  4. BENADRYL [Concomitant]
  5. VITAMINS + MINERALS [Concomitant]
  6. CODEINE [Concomitant]
  7. TRIAMTERENE AND HYDROCHLOROTHIAZIDE [Concomitant]
  8. PROPRANOLOL HYDROCHLORIDE [Concomitant]
  9. CLONAPIN [Concomitant]
  10. LISINOPRIL [Concomitant]
  11. AMLODIPINE BESYLATE [Concomitant]
  12. PANTOPRAZOLE SODIUM [Concomitant]
  13. SERTRALINE HCL [Concomitant]

REACTIONS (3)
  - BACK PAIN [None]
  - CHEST DISCOMFORT [None]
  - PAIN IN EXTREMITY [None]
